FAERS Safety Report 8952525 (Version 1)
Quarter: 2012Q4

REPORT INFORMATION
  Report Type: 
  Country: US (occurrence: US)
  Receive Date: 20121205
  Receipt Date: 20121205
  Transmission Date: 20130627
  Serious: Yes (Other)
  Sender: FDA-Public Use
  Company Number: US-GENZYME-FABR-1002877

PATIENT
  Age: 60 Year
  Sex: Male
  Weight: 75 kg

DRUGS (5)
  1. FABRAZYME [Suspect]
     Indication: FABRY^S DISEASE
     Dosage: 225 mg, q2-4w
     Route: 042
     Dates: start: 20120112
  2. CELLCEPT [Concomitant]
     Indication: PRODUCT USED FOR UNKNOWN INDICATION
  3. PROGRAF [Concomitant]
     Indication: PRODUCT USED FOR UNKNOWN INDICATION
  4. LISINOPRIL [Concomitant]
     Indication: PRODUCT USED FOR UNKNOWN INDICATION
  5. LOVAZA [Concomitant]
     Indication: PRODUCT USED FOR UNKNOWN INDICATION

REACTIONS (3)
  - Depression [Unknown]
  - Agitation [Unknown]
  - Erectile dysfunction [Unknown]
